FAERS Safety Report 13047517 (Version 1)
Quarter: 2016Q4

REPORT INFORMATION
  Report Type: Spontaneous
  Country: US (occurrence: US)
  Receive Date: 20161220
  Receipt Date: 20161220
  Transmission Date: 20170207
  Serious: Yes (Other)
  Sender: FDA-Public Use
  Company Number: US-SAGENTPRD-2016-US-000119

PATIENT
  Sex: Female

DRUGS (5)
  1. VINCRISTINE [Concomitant]
     Active Substance: VINCRISTINE
  2. CYCLOPHOSPHAMIDE. [Concomitant]
     Active Substance: CYCLOPHOSPHAMIDE
  3. METHOTREXATE. [Concomitant]
     Active Substance: METHOTREXATE
  4. DOXORUBICIN HYDROCHLORIDE INJECTION, USP [Suspect]
     Active Substance: DOXORUBICIN HYDROCHLORIDE
     Dosage: UNKNOWN
  5. RITUXIMAB [Concomitant]
     Active Substance: RITUXIMAB

REACTIONS (2)
  - Febrile neutropenia [Unknown]
  - Sepsis [Unknown]
